FAERS Safety Report 21705377 (Version 2)
Quarter: 2022Q4

REPORT INFORMATION
  Report Type: Spontaneous
  Country: JP (occurrence: None)
  Receive Date: 20221209
  Receipt Date: 20221220
  Transmission Date: 20230112
  Serious: Yes (Hospitalization)
  Sender: FDA-Public Use
  Company Number: 2022A397200

PATIENT
  Age: 78 Year
  Sex: Male

DRUGS (4)
  1. BREZTRI [Suspect]
     Active Substance: BUDESONIDE\FORMOTEROL\GLYCOPYRROLATE
     Indication: Chronic obstructive pulmonary disease
     Dosage: DOSE UNKNOWN
     Route: 055
  2. DAYVIGO [Concomitant]
     Active Substance: LEMBOREXANT
  3. ROZEREM [Concomitant]
     Active Substance: RAMELTEON
  4. SYMPROIC [Concomitant]
     Active Substance: NALDEMEDINE

REACTIONS (1)
  - Chronic obstructive pulmonary disease [Not Recovered/Not Resolved]

NARRATIVE: CASE EVENT DATE: 20221128
